FAERS Safety Report 15880247 (Version 1)
Quarter: 2019Q1

REPORT INFORMATION
  Report Type: Spontaneous
  Country: US (occurrence: US)
  Receive Date: 20190104
  Receipt Date: 20190104
  Transmission Date: 20190417
  Serious: Yes (Hospitalization)
  Sender: FDA-Public Use
  Company Number: None

PATIENT
  Age: 76 Year
  Weight: 57.8 kg

DRUGS (2)
  1. CARBOPLATIN. [Suspect]
     Active Substance: CARBOPLATIN
     Dates: end: 20181005
  2. ETOPOSIDE (VP-16) [Suspect]
     Active Substance: ETOPOSIDE
     Dates: end: 20181005

REACTIONS (7)
  - Central nervous system lesion [None]
  - Haemorrhage [None]
  - Fatigue [None]
  - Oedema [None]
  - Abnormal behaviour [None]
  - Asthenia [None]
  - Metastases to central nervous system [None]

NARRATIVE: CASE EVENT DATE: 20181218
